FAERS Safety Report 16204957 (Version 2)
Quarter: 2019Q3

REPORT INFORMATION
  Report Type: Spontaneous
  Country: US (occurrence: US)
  Receive Date: 20190416
  Receipt Date: 20190716
  Transmission Date: 20191004
  Serious: No
  Sender: FDA-Public Use
  Company Number: US-CHILTERN-US-2018-000291

PATIENT
  Age: 80 Year
  Sex: Female
  Weight: 58.5 kg

DRUGS (1)
  1. RHOPRESSA [Suspect]
     Active Substance: NETARSUDIL MESYLATE
     Indication: GLAUCOMA
     Dosage: UNK, UNK
     Route: 047
     Dates: start: 20180911, end: 201812

REACTIONS (2)
  - Vision blurred [Recovering/Resolving]
  - Corneal oedema [Recovered/Resolved]

NARRATIVE: CASE EVENT DATE: 20181219
